FAERS Safety Report 5736077-0 (Version None)
Quarter: 2008Q2

REPORT INFORMATION
  Report Type: 
  Country: None (occurrence: None)
  Receive Date: 20080513
  Receipt Date: 20080502
  Transmission Date: 20081010
  Serious: Yes (Hospitalization)
  Sender: FDA-Public Use
  Company Number: NO-ROCHE-562692

PATIENT
  Sex: Male

DRUGS (1)
  1. ROACCUTAN [Suspect]
     Route: 048
     Dates: start: 20080201, end: 20080401

REACTIONS (2)
  - C-REACTIVE PROTEIN INCREASED [None]
  - GLOMERULONEPHRITIS ACUTE [None]
